FAERS Safety Report 7967664-7 (Version None)
Quarter: 2011Q4

REPORT INFORMATION
  Report Type: 
  Country: None (occurrence: None)
  Receive Date: 20111207
  Receipt Date: 20111123
  Transmission Date: 20120403
  Serious: Yes (Hospitalization)
  Sender: FDA-Public Use
  Company Number: USA/USA/11/0022172

PATIENT
  Age: 15 Year
  Sex: Male

DRUGS (1)
  1. ONDANSETRON [Suspect]
     Indication: PRODUCT USED FOR UNKNOWN INDICATION
     Dosage: THE PATIENT TOOK A MAXIMUM OF 18 TABLETS IN A MIXTURE OF 4 AND 8 MG TABLETS

REACTIONS (9)
  - ELECTROCARDIOGRAM QRS COMPLEX PROLONGED [None]
  - SOMNOLENCE [None]
  - ELECTROCARDIOGRAM QT PROLONGED [None]
  - AGITATION [None]
  - TACHYCARDIA [None]
  - TOXICITY TO VARIOUS AGENTS [None]
  - OVERDOSE [None]
  - IRRITABILITY [None]
  - FLUSHING [None]
